FAERS Safety Report 12708857 (Version 1)
Quarter: 2016Q3

REPORT INFORMATION
  Report Type: Spontaneous
  Country: US (occurrence: US)
  Receive Date: 20160901
  Receipt Date: 20160901
  Transmission Date: 20161109
  Serious: No
  Sender: FDA-Public Use
  Company Number: US-JAZZ-2016-US-008185

PATIENT

DRUGS (8)
  1. AZELASTINE [Concomitant]
     Active Substance: AZELASTINE
  2. IBUPROFEN. [Concomitant]
     Active Substance: IBUPROFEN
  3. PROVIGIL [Concomitant]
     Active Substance: MODAFINIL
  4. AMLODIPINE BENAZEPRIL [Concomitant]
     Active Substance: AMLODIPINE BESYLATE\BENAZEPRIL HYDROCHLORIDE
  5. XYREM [Suspect]
     Active Substance: SODIUM OXYBATE
     Indication: NARCOLEPSY
     Dosage: 4.5 G, BID
     Route: 048
     Dates: start: 20160428
  6. MULTIVITAMINS [Concomitant]
     Active Substance: VITAMINS
  7. NAPROXEN DR [Concomitant]
  8. METHYLPHENIDATE. [Concomitant]
     Active Substance: METHYLPHENIDATE

REACTIONS (1)
  - Somnolence [Not Recovered/Not Resolved]

NARRATIVE: CASE EVENT DATE: 20160429
